FAERS Safety Report 22924694 (Version 3)
Quarter: 2023Q4

REPORT INFORMATION
  Report Type: Spontaneous
  Country: DE (occurrence: DE)
  Receive Date: 20230908
  Receipt Date: 20231103
  Transmission Date: 20240109
  Serious: Yes (Hospitalization)
  Sender: FDA-Public Use
  Company Number: DE-TEVA-2023-DE-2923198

PATIENT
  Age: 80 Year
  Sex: Male
  Weight: 88 kg

DRUGS (1)
  1. SULFAMETHOXAZOLE\TRIMETHOPRIM [Suspect]
     Active Substance: SULFAMETHOXAZOLE\TRIMETHOPRIM
     Indication: Cystitis haemorrhagic
     Dosage: FORM STRENGTH: 800 MG/160 MG, DOSAGE; 1-0-1
     Route: 048
     Dates: start: 20230726, end: 2023

REACTIONS (16)
  - Immune thrombocytopenia [Unknown]
  - Thrombocytopenia [Unknown]
  - Eye contusion [Unknown]
  - Skin haemorrhage [Unknown]
  - Mouth haemorrhage [Unknown]
  - Melaena [Unknown]
  - Haematuria [Unknown]
  - Haemothorax [Unknown]
  - Intra-abdominal fluid collection [Unknown]
  - Renal failure [Unknown]
  - Urinary incontinence [Unknown]
  - Anaemia macrocytic [Unknown]
  - Overdose [Unknown]
  - Haematemesis [Unknown]
  - Nocturia [Unknown]
  - Myelosuppression [Unknown]

NARRATIVE: CASE EVENT DATE: 20230726
